FAERS Safety Report 21951263 (Version 2)
Quarter: 2024Q1

REPORT INFORMATION
  Report Type: Spontaneous
  Country: US (occurrence: US)
  Receive Date: 20230203
  Receipt Date: 20240105
  Transmission Date: 20240409
  Serious: No
  Sender: FDA-Public Use
  Company Number: US-SA-SAC20230131001108

PATIENT
  Age: 57 Year
  Sex: Male

DRUGS (1)
  1. DUPIXENT [Suspect]
     Active Substance: DUPILUMAB
     Indication: Dermatitis atopic
     Dosage: 300 MG, QOW
     Route: 058

REACTIONS (7)
  - Back pain [Unknown]
  - Headache [Unknown]
  - Blood pressure increased [Unknown]
  - Nerve compression [Not Recovered/Not Resolved]
  - Myalgia [Unknown]
  - Surgery [Unknown]
  - Product dose omission in error [Unknown]
